FAERS Safety Report 21990399 (Version 2)
Quarter: 2023Q1

REPORT INFORMATION
  Report Type: Spontaneous
  Country: JP (occurrence: JP)
  Receive Date: 20230214
  Receipt Date: 20230306
  Transmission Date: 20230418
  Serious: Yes (Other)
  Sender: FDA-Public Use
  Company Number: JP-OTSUKA-2022_055713

PATIENT
  Age: 95 Year
  Sex: Female

DRUGS (1)
  1. SAMSCA [Suspect]
     Active Substance: TOLVAPTAN
     Indication: Cardiac failure
     Dosage: UNK
     Route: 065

REACTIONS (3)
  - Altered state of consciousness [Recovered/Resolved]
  - Dehydration [Recovered/Resolved]
  - Wrong technique in product usage process [Unknown]
